FAERS Safety Report 7728095-8 (Version None)
Quarter: 2011Q3

REPORT INFORMATION
  Report Type: 
  Country: None (occurrence: None)
  Receive Date: 20110905
  Receipt Date: 20110826
  Transmission Date: 20111222
  Serious: Yes (Other)
  Sender: FDA-Public Use
  Company Number: BR-BRISTOL-MYERS SQUIBB COMPANY-16015737

PATIENT
  Age: 85 Year
  Sex: Female
  Weight: 46 kg

DRUGS (6)
  1. CLOPIDOGREL BISULFATE [Concomitant]
     Dosage: 1DF=1 TAB STARTED 8 MONTHS AGO
     Route: 048
  2. VITAMIN C TABS [Concomitant]
     Dosage: 1DF= 1 TAB
     Route: 048
  3. IRBESARTAN [Suspect]
     Indication: HYPERTENSION
     Dosage: 1DF=1 TAB STARETD 5 YRS AGO
     Route: 048
  4. CRESTOR [Concomitant]
     Dosage: 1DF=1 TAB
     Route: 048
  5. CHONDROITIN SULFATE + GLUCOSAMINE [Concomitant]
     Indication: OSTEOARTHRITIS
     Dosage: 1DF=1 TAB
     Route: 048
  6. CALCIUM CARBONATE [Concomitant]
     Indication: BONE DECALCIFICATION
     Dosage: 1DF=1 TAB
     Route: 048

REACTIONS (2)
  - TENDON RUPTURE [None]
  - PAIN IN EXTREMITY [None]
